FAERS Safety Report 5203136-0 (Version None)
Quarter: 2006Q4

REPORT INFORMATION
  Report Type: 
  Country: None (occurrence: None)
  Receive Date: 20061016
  Receipt Date: 20051011
  Transmission Date: 20070319
  Serious: Yes (Other)
  Sender: FDA-Public Use
  Company Number: 2005141192

PATIENT
  Age: 62 Year
  Sex: Male

DRUGS (13)
  1. NEURONTIN [Suspect]
     Indication: PAIN
     Dosage: 1200 MG (400 MG, 3 IN 1 D),
     Dates: start: 20050801
  2. MONOPRIL [Concomitant]
  3. GLUCOTROL XL [Concomitant]
  4. ATENOLOL [Concomitant]
  5. PRINIVIL [Concomitant]
  6. LASIX [Concomitant]
  7. KLONOPIN [Concomitant]
  8. GABITRIL [Concomitant]
  9. ASPIRIN [Concomitant]
  10. CLONIDINE [Concomitant]
  11. GLUCOPHAGE [Concomitant]
  12. CYMBALTA [Concomitant]
  13. NIFEDIPINE [Concomitant]

REACTIONS (2)
  - BLOOD PRESSURE DIASTOLIC DECREASED [None]
  - DRUG INEFFECTIVE [None]
